APPROVED DRUG PRODUCT: TWYNEO
Active Ingredient: BENZOYL PEROXIDE; TRETINOIN
Strength: 3%;0.1%
Dosage Form/Route: CREAM;TOPICAL
Application: N214902 | Product #001
Applicant: MAYNE PHARMA LLC
Approved: Jul 26, 2021 | RLD: Yes | RS: Yes | Type: RX

PATENTS:
Patent 12295935 | Expires: Dec 27, 2040
Patent 12357602 | Expires: Jul 12, 2038
Patent 12257348 | Expires: May 23, 2041
Patent 12491163 | Expires: May 23, 2041
Patent 9868103 | Expires: Aug 8, 2028
Patent 10420743 | Expires: Jul 12, 2038
Patent 10653899 | Expires: Dec 30, 2030
Patent 12070629 | Expires: Dec 30, 2030
Patent 12133919 | Expires: May 23, 2041
Patent 12053546 | Expires: Jun 29, 2032
Patent 8617580 | Expires: Feb 3, 2028
Patent 11071878 | Expires: Dec 30, 2030
Patent 12156946 | Expires: Feb 3, 2028